FAERS Safety Report 14707692 (Version 1)
Quarter: 2018Q2

REPORT INFORMATION
  Report Type: Spontaneous
  Country: ES (occurrence: ES)
  Receive Date: 20180403
  Receipt Date: 20180403
  Transmission Date: 20180711
  Serious: Yes (Other)
  Sender: FDA-Public Use
  Company Number: ES-ACCORD-064996

PATIENT
  Age: 53 Year
  Sex: Male

DRUGS (4)
  1. TEMOZOLOMIDE. [Suspect]
     Active Substance: TEMOZOLOMIDE
     Indication: PARAGANGLION NEOPLASM
     Dosage: FOR 21 DAYS EVERY 28 DAYS
  2. LANREOTIDE/LANREOTIDE ACETATE [Concomitant]
     Active Substance: LANREOTIDE
     Dosage: 120 MG EVERY 14 DAYS
  3. PROPRANOLOL [Suspect]
     Active Substance: PROPRANOLOL HYDROCHLORIDE
     Indication: HYPERTENSION
     Dosage: ALSO RECEIVED UP TO 3 MG/KG/DAY
  4. DENOSUMAB [Concomitant]
     Active Substance: DENOSUMAB
     Dosage: 120 MG EVERY 28 DAYS
     Dates: start: 201411

REACTIONS (3)
  - Therapeutic response increased [Unknown]
  - Lymphopenia [Unknown]
  - Thrombocytopenia [Unknown]
